FAERS Safety Report 4726155-7 (Version None)
Quarter: 2005Q3

REPORT INFORMATION
  Report Type: 
  Country: None (occurrence: None)
  Receive Date: 20050727
  Receipt Date: 20050715
  Transmission Date: 20060218
  Serious: Yes (Death, Other)
  Sender: FDA-Public Use
  Company Number: JP-JNJFOC-20050401751

PATIENT
  Sex: Male

DRUGS (8)
  1. DUROTEP [Suspect]
     Route: 062
  2. DUROTEP [Suspect]
     Route: 062
  3. DUROTEP [Suspect]
     Indication: CANCER PAIN
     Route: 062
  4. MORPHINE HCL ELIXIR [Concomitant]
     Indication: CANCER PAIN
  5. FERROUS CITRATE [Concomitant]
     Route: 048
  6. FAMOTIDINE [Concomitant]
     Indication: GASTRIC ULCER
     Route: 048
  7. PROCHLORPERAZINE MALEATE [Concomitant]
     Indication: VOMITING
     Route: 048
  8. DOMPERIDONE [Concomitant]
     Route: 048

REACTIONS (4)
  - BILE DUCT CANCER [None]
  - DELIRIUM [None]
  - HALLUCINATION, AUDITORY [None]
  - MALIGNANT NEOPLASM PROGRESSION [None]
